FAERS Safety Report 10257532 (Version 1)
Quarter: 2014Q2

REPORT INFORMATION
  Report Type: Spontaneous
  Country: FR (occurrence: FR)
  Receive Date: 20140625
  Receipt Date: 20140625
  Transmission Date: 20141212
  Serious: Yes (Hospitalization)
  Sender: FDA-Public Use
  Company Number: PHHY2014FR076937

PATIENT
  Age: 52 Year
  Sex: Male

DRUGS (2)
  1. ZOMETA [Suspect]
     Dosage: UNK UKN, TOTAL OF 10 INJECTIONS
  2. AVASTIN [Suspect]
     Dosage: 25 MG/ML, TOTAL OF 10 INFUSION

REACTIONS (1)
  - Osteonecrosis [Unknown]
